FAERS Safety Report 7222109-X (Version None)
Quarter: 2011Q1

REPORT INFORMATION
  Report Type: 
  Country: None (occurrence: None)
  Receive Date: 20110112
  Receipt Date: 20110110
  Transmission Date: 20110831
  Serious: Yes (Death)
  Sender: FDA-Public Use
  Company Number: DE-ROCHE-752293

PATIENT
  Sex: Male
  Weight: 103 kg

DRUGS (32)
  1. FENTANYL [Concomitant]
     Route: 042
     Dates: start: 20101221, end: 20101221
  2. GLUKOS [Concomitant]
     Route: 042
     Dates: start: 20101222, end: 20101224
  3. OMEPRAZOLE [Concomitant]
     Route: 048
     Dates: start: 20101123, end: 20101123
  4. OMEPRAZOLE [Concomitant]
     Route: 048
     Dates: start: 20101221, end: 20101221
  5. VOLTAREN [Concomitant]
     Route: 048
     Dates: start: 20101224, end: 20101231
  6. NAROPIN [Concomitant]
     Route: 042
     Dates: start: 20101221, end: 20101221
  7. HES [Concomitant]
     Route: 042
     Dates: start: 20101221, end: 20101221
  8. VOMEX A [Concomitant]
     Indication: NAUSEA
     Route: 042
     Dates: start: 20101222, end: 20101222
  9. OMEPRAZOLE [Concomitant]
     Route: 048
     Dates: start: 20101102, end: 20101103
  10. ESMERON [Concomitant]
     Route: 042
     Dates: start: 20101221, end: 20101221
  11. DESFLURANE [Concomitant]
     Route: 055
     Dates: start: 20101221, end: 20101221
  12. CAPECITABINE [Suspect]
     Indication: RECTAL CANCER
     Route: 048
     Dates: start: 20101014
  13. OXALIPLATIN [Suspect]
     Indication: RECTAL CANCER
     Route: 042
  14. NAROPIN [Concomitant]
     Route: 042
     Dates: start: 20101221, end: 20101221
  15. OMEPRAZOLE [Concomitant]
     Route: 048
     Dates: start: 20101018, end: 20101019
  16. JONOSTERIL [Concomitant]
     Route: 042
     Dates: start: 20101221, end: 20101224
  17. DORMICUM [Concomitant]
     Indication: SEDATION
     Route: 048
     Dates: start: 20101221, end: 20101221
  18. EMBOLEX [Concomitant]
     Indication: THROMBOSIS PROPHYLAXIS
     Route: 042
     Dates: start: 20101221, end: 20101231
  19. EPIDURAL FENTANYL [Concomitant]
     Route: 042
     Dates: start: 20101221, end: 20101221
  20. AKRINOR [Concomitant]
     Route: 042
     Dates: start: 20101221, end: 20101221
  21. QUANTALAN [Concomitant]
     Route: 048
     Dates: start: 20101229, end: 20101230
  22. PANTOZOL [Concomitant]
     Route: 048
     Dates: start: 20101222, end: 20101231
  23. NOCTAMID [Concomitant]
     Indication: SLEEP DISORDER THERAPY
     Route: 048
     Dates: start: 20101226, end: 20101231
  24. TRAPANAL [Concomitant]
     Route: 042
     Dates: start: 20101221, end: 20101221
  25. CLONT [Concomitant]
     Route: 042
     Dates: start: 20101221, end: 20101221
  26. PERFALGAN [Concomitant]
     Route: 042
     Dates: start: 20101223, end: 20101224
  27. DIPIDOLOR [Concomitant]
     Route: 042
     Dates: start: 20101221, end: 20101221
  28. LASIX [Concomitant]
     Route: 042
     Dates: start: 20101221, end: 20101221
  29. CLONIDINE [Concomitant]
     Indication: HYPERTENSION
     Route: 042
     Dates: start: 20101221, end: 20101221
  30. CEFAZOLIN SODIUM [Concomitant]
     Route: 042
     Dates: start: 20101221, end: 20101221
  31. LASIX [Concomitant]
     Route: 042
     Dates: start: 20101222, end: 20101222
  32. SODIUM CHLORIDE [Concomitant]
     Route: 042
     Dates: start: 20101222, end: 20101222

REACTIONS (1)
  - DEATH [None]
